FAERS Safety Report 20173540 (Version 5)
Quarter: 2021Q4

REPORT INFORMATION
  Report Type: Report from Study
  Country: CN (occurrence: CN)
  Receive Date: 20211212
  Receipt Date: 20211212
  Transmission Date: 20220304
  Serious: Yes (Other)
  Sender: FDA-Public Use
  Company Number: CN-BioHaven Pharmaceuticals-2021BHV000148

PATIENT
  Age: 32 Year
  Sex: Female
  Weight: 60 kg

DRUGS (1)
  1. RIMEGEPANT [Suspect]
     Active Substance: RIMEGEPANT
     Indication: Migraine
     Route: 048
     Dates: start: 20210522, end: 20210522

REACTIONS (3)
  - Pregnancy [Recovered/Resolved]
  - Abortion induced [Recovered/Resolved]
  - Decreased embryo viability [Recovered/Resolved]

NARRATIVE: CASE EVENT DATE: 20210428
